FAERS Safety Report 10334689 (Version 1)
Quarter: 2014Q3

REPORT INFORMATION
  Report Type: Spontaneous
  Country: US (occurrence: None)
  Receive Date: 20140721
  Receipt Date: 20140721
  Transmission Date: 20150326
  Serious: Yes (Disabling)
  Sender: FDA-Public Use
  Company Number: None

PATIENT
  Age: 74 Year
  Sex: Male
  Weight: 88.91 kg

DRUGS (2)
  1. DUREZOL [Suspect]
     Active Substance: DIFLUPREDNATE
     Indication: CATARACT
     Dosage: 1 DROP EVERY 2 HOURS
     Dates: start: 20140625, end: 20140718
  2. DUREZOL [Suspect]
     Active Substance: DIFLUPREDNATE
     Indication: EYE OPERATION
     Dosage: 1 DROP EVERY 2 HOURS
     Dates: start: 20140625, end: 20140718

REACTIONS (1)
  - Photosensitivity reaction [None]

NARRATIVE: CASE EVENT DATE: 20140709
